FAERS Safety Report 8217250-9 (Version None)
Quarter: 2012Q1

REPORT INFORMATION
  Report Type: 
  Country: None (occurrence: None)
  Receive Date: 20120319
  Receipt Date: 20120314
  Transmission Date: 20120608
  Serious: No
  Sender: FDA-Public Use
  Company Number: US-PFIZER INC-2012068365

PATIENT
  Sex: Female
  Weight: 58.05 kg

DRUGS (2)
  1. GENOTROPIN [Suspect]
     Dosage: 0.2 MG, DAILY
     Route: 058
  2. NORVASC [Concomitant]
     Dosage: 5 MG

REACTIONS (3)
  - WEIGHT INCREASED [None]
  - BACK PAIN [None]
  - ASTHENIA [None]
